FAERS Safety Report 7304699-1 (Version None)
Quarter: 2011Q1

REPORT INFORMATION
  Report Type: 
  Country: None (occurrence: None)
  Receive Date: 20110222
  Receipt Date: 20110209
  Transmission Date: 20110831
  Serious: No
  Sender: FDA-Public Use
  Company Number: US-PFIZER INC-US-WYE-H14359510

PATIENT
  Sex: Female

DRUGS (2)
  1. PHENTERMINE [Suspect]
     Dosage: UNKNOWN
  2. PRISTIQ [Suspect]
     Dosage: UNKNOWN
     Route: 065

REACTIONS (1)
  - INCREASED APPETITE [None]
